FAERS Safety Report 9097885 (Version 1)
Quarter: 2013Q1

REPORT INFORMATION
  Report Type: Report from Study
  Country: US (occurrence: US)
  Receive Date: 20130212
  Receipt Date: 20130212
  Transmission Date: 20140127
  Serious: Yes (Other)
  Sender: FDA-Public Use
  Company Number: US-JNJFOC-20130204231

PATIENT
  Sex: Female

DRUGS (1)
  1. REMICADE [Suspect]
     Indication: COLITIS ULCERATIVE
     Route: 042

REACTIONS (5)
  - Respiratory arrest [Not Recovered/Not Resolved]
  - Hypersensitivity [Unknown]
  - Arthritis [Unknown]
  - Arthralgia [Unknown]
  - Back disorder [Unknown]
